FAERS Safety Report 21963270 (Version 1)
Quarter: 2023Q1

REPORT INFORMATION
  Report Type: Spontaneous
  Country: FR (occurrence: FR)
  Receive Date: 20230207
  Receipt Date: 20230207
  Transmission Date: 20230417
  Serious: Yes (Other)
  Sender: FDA-Public Use
  Company Number: FR-HARMONY BIOSCIENCES-2023HMY00185

PATIENT
  Sex: Male

DRUGS (1)
  1. WAKIX [Suspect]
     Active Substance: PITOLISANT HYDROCHLORIDE

REACTIONS (1)
  - Delirium [Unknown]

NARRATIVE: CASE EVENT DATE: 20180101
